FAERS Safety Report 4518624-X (Version None)
Quarter: 2004Q4

REPORT INFORMATION
  Report Type: 
  Country: None (occurrence: None)
  Receive Date: 20041104
  Receipt Date: 20040624
  Transmission Date: 20050328
  Serious: Yes (Hospitalization)
  Sender: FDA-Public Use
  Company Number: DSA_24601_2004

PATIENT
  Age: 25 Year

DRUGS (6)
  1. LORAZEPAM [Suspect]
     Dosage: 30 MG ONCE
  2. LORAZEPAM [Suspect]
  3. WELLBUTRIN [Suspect]
     Dosage: 12.5 G ONCE PO
     Route: 048
  4. WELLBUTRIN [Suspect]
  5. PAXIL [Suspect]
     Dosage: 1220 MG ONCE
  6. PAXIL [Suspect]

REACTIONS (2)
  - COMA [None]
  - OVERDOSE [None]
